FAERS Safety Report 13590070 (Version 1)
Quarter: 2017Q2

REPORT INFORMATION
  Report Type: Spontaneous
  Country: US (occurrence: US)
  Receive Date: 20170529
  Receipt Date: 20170529
  Transmission Date: 20170830
  Serious: Yes (Life-Threatening, Hospitalization, Disabling)
  Sender: FDA-Public Use
  Company Number: None

PATIENT
  Age: 54 Year
  Sex: Male
  Weight: 84.15 kg

DRUGS (13)
  1. BENADRYL [Concomitant]
     Active Substance: DIPHENHYDRAMINE HYDROCHLORIDE
  2. ASPIRIN. [Concomitant]
     Active Substance: ASPIRIN
  3. RANEXA [Concomitant]
     Active Substance: RANOLAZINE
  4. PANTOPRAZOLE SODIUM. [Concomitant]
     Active Substance: PANTOPRAZOLE SODIUM
  5. PRALUENT [Suspect]
     Active Substance: ALIROCUMAB
     Indication: BLOOD CHOLESTEROL INCREASED
     Dosage: QUANTITY:1 INJECTION(S);OTHER FREQUENCY:EVERY 2 WEEKS;OTHER ROUTE:INJECTION?
     Dates: start: 20151001, end: 20170405
  6. COQ10 [Concomitant]
     Active Substance: UBIDECARENONE
  7. AMLODIPINE BESYLATE. [Concomitant]
     Active Substance: AMLODIPINE BESYLATE
  8. DIAZEPAM. [Concomitant]
     Active Substance: DIAZEPAM
  9. PLAVIX [Concomitant]
     Active Substance: CLOPIDOGREL BISULFATE
  10. CARVEDILOL. [Concomitant]
     Active Substance: CARVEDILOL
  11. NITRO TIME [Concomitant]
  12. NUTRITIONAL SHAKE [Concomitant]
  13. NITROSTAT [Concomitant]
     Active Substance: NITROGLYCERIN

REACTIONS (10)
  - Feeling abnormal [None]
  - Headache [None]
  - Decreased activity [None]
  - Dyspnoea [None]
  - Chest discomfort [None]
  - Dizziness [None]
  - Vertigo [None]
  - Nausea [None]
  - Lethargy [None]
  - Neuropathy peripheral [None]

NARRATIVE: CASE EVENT DATE: 20170329
